FAERS Safety Report 6852284-8 (Version None)
Quarter: 2010Q3

REPORT INFORMATION
  Report Type: 
  Country: None (occurrence: None)
  Receive Date: 20100717
  Receipt Date: 20071107
  Transmission Date: 20110219
  Serious: No
  Sender: FDA-Public Use
  Company Number: US-PFIZER INC-2007096037

PATIENT
  Sex: Male
  Weight: 122.5 kg

DRUGS (3)
  1. CHANTIX [Suspect]
     Indication: SMOKING CESSATION THERAPY
     Dates: start: 20070901
  2. LISINOPRIL [Concomitant]
  3. PREDNISONE [Concomitant]

REACTIONS (6)
  - FLATULENCE [None]
  - HYPERTENSION [None]
  - LETHARGY [None]
  - NAUSEA [None]
  - NIGHTMARE [None]
  - SOMNOLENCE [None]
